FAERS Safety Report 7026692-9 (Version None)
Quarter: 2010Q4

REPORT INFORMATION
  Report Type: 
  Country: None (occurrence: None)
  Receive Date: 20101004
  Receipt Date: 20100924
  Transmission Date: 20110411
  Serious: Yes (Other)
  Sender: FDA-Public Use
  Company Number: TW-ABBOTT-10P-153-0659558-00

PATIENT
  Age: 27 Year
  Sex: Female
  Weight: 60 kg

DRUGS (3)
  1. SIBUTRAMINE HYDROCHLORIDE MONOHYDRATE [Suspect]
     Indication: PRODUCT USED FOR UNKNOWN INDICATION
     Route: 048
     Dates: start: 20100506, end: 20100601
  2. REDUCTIL 15MG [Suspect]
     Indication: PRODUCT USED FOR UNKNOWN INDICATION
     Route: 048
     Dates: start: 20100601, end: 20100601
  3. REDUCTIL 15MG [Suspect]
     Route: 048
     Dates: start: 20100630, end: 20100713

REACTIONS (5)
  - ABDOMINAL PAIN LOWER [None]
  - ANAEMIA [None]
  - ECTOPIC PREGNANCY [None]
  - HYPOTENSION [None]
  - VAGINAL HAEMORRHAGE [None]
